FAERS Safety Report 6441728-1 (Version None)
Quarter: 2009Q4

REPORT INFORMATION
  Report Type: 
  Country: None (occurrence: None)
  Receive Date: 20091113
  Receipt Date: 20091113
  Transmission Date: 20100525
  Serious: Yes (Hospitalization)
  Sender: FDA-Public Use
  Company Number: None

PATIENT
  Age: 82 Year

DRUGS (2)
  1. MINOCYCLINE HCL [Suspect]
     Indication: PSEUDOMONAS INFECTION
     Dosage: 100 MG BID PO
     Route: 048
     Dates: start: 20090917, end: 20090925
  2. MINOCYCLINE HCL [Suspect]
     Indication: STAPHYLOCOCCAL INFECTION
     Dosage: 100 MG BID PO
     Route: 048
     Dates: start: 20090917, end: 20090925

REACTIONS (5)
  - DIZZINESS [None]
  - NAUSEA [None]
  - RASH [None]
  - VERTIGO [None]
  - VOMITING [None]
